FAERS Safety Report 17892857 (Version 1)
Quarter: 2020Q2

REPORT INFORMATION
  Report Type: Spontaneous
  Country: US (occurrence: US)
  Receive Date: 20200613
  Receipt Date: 20200613
  Transmission Date: 20200714
  Serious: No
  Sender: FDA-Public Use
  Company Number: US-CADILA HEALTHCARE LIMITED-US-ZYDUS-037919

PATIENT

DRUGS (2)
  1. LIPITOR [Concomitant]
     Active Substance: ATORVASTATIN CALCIUM
     Indication: HYPERLIPIDAEMIA
     Dosage: 10 MILLIGRAM,FREQUENCY :ONCE DAILY
     Route: 065
  2. VENLAFAXINE [Suspect]
     Active Substance: VENLAFAXINE HYDROCHLORIDE
     Indication: BACK PAIN
     Dosage: 112.5 MILLIGRAM,FREQUENCY :ONCE DAILY
     Route: 048
     Dates: start: 2012

REACTIONS (13)
  - Ejaculation failure [Recovered/Resolved]
  - Chest pain [Recovered/Resolved]
  - Withdrawal syndrome [Recovered/Resolved]
  - Intentional product use issue [Not Recovered/Not Resolved]
  - Anorgasmia [Recovered/Resolved]
  - Product use in unapproved indication [Not Recovered/Not Resolved]
  - Dysuria [Recovered/Resolved]
  - Therapeutic product effective for unapproved indication [Recovered/Resolved]
  - Feeling abnormal [Recovered/Resolved]
  - Disturbance in attention [Recovered/Resolved]
  - Drug ineffective for unapproved indication [Not Recovered/Not Resolved]
  - Cardiac flutter [Recovered/Resolved]
  - Palpitations [Recovered/Resolved]

NARRATIVE: CASE EVENT DATE: 2012
